FAERS Safety Report 13135833 (Version 1)
Quarter: 2017Q1

REPORT INFORMATION
  Report Type: Spontaneous
  Country: US (occurrence: US)
  Receive Date: 20170120
  Receipt Date: 20170120
  Transmission Date: 20170428
  Serious: No
  Sender: FDA-Public Use
  Company Number: US-PFIZER INC-3128802

PATIENT
  Sex: Female

DRUGS (2)
  1. DEXTROSE. [Suspect]
     Active Substance: DEXTROSE
     Indication: RASH PRURITIC
  2. DEXTROSE. [Suspect]
     Active Substance: DEXTROSE
     Indication: DEHYDRATION
     Dosage: 400 ML
     Route: 041
     Dates: start: 20151223, end: 20151223

REACTIONS (6)
  - Oropharyngeal pain [Recovering/Resolving]
  - Influenza [Recovering/Resolving]
  - Headache [Recovering/Resolving]
  - Back pain [Recovering/Resolving]
  - Expired product administered [Recovering/Resolving]
  - Myalgia [Recovering/Resolving]

NARRATIVE: CASE EVENT DATE: 20151223
